FAERS Safety Report 16858169 (Version 1)
Quarter: 2019Q3

REPORT INFORMATION
  Report Type: Spontaneous
  Country: FR (occurrence: FR)
  Receive Date: 20190926
  Receipt Date: 20190926
  Transmission Date: 20191005
  Serious: Yes (Hospitalization)
  Sender: FDA-Public Use
  Company Number: FR-009507513-1909FRA006422

PATIENT
  Age: 61 Year
  Sex: Female
  Weight: 38 kg

DRUGS (15)
  1. NEFOPAM [Concomitant]
     Active Substance: NEFOPAM
     Route: 048
  2. CALCIPARINE [Concomitant]
     Active Substance: HEPARIN CALCIUM
     Route: 058
  3. SERESTA [Concomitant]
     Active Substance: OXAZEPAM
     Route: 048
  4. VALGANCICLOVIR HYDROCHLORIDE. [Concomitant]
     Active Substance: VALGANCICLOVIR HYDROCHLORIDE
     Route: 048
  5. BISOCE [Concomitant]
     Active Substance: BISOPROLOL
     Route: 048
  6. CORTANCYL [Concomitant]
     Active Substance: PREDNISONE
     Route: 048
  7. INVANZ [Suspect]
     Active Substance: ERTAPENEM SODIUM
     Indication: PYELONEPHRITIS ACUTE
     Dosage: 0.5 GRAM, QD, FORMULATION: POWDER FOR SOLUTION TO DILUTE FOR INFUSION
     Route: 042
     Dates: start: 20190705, end: 20190710
  8. BACTRIM [Concomitant]
     Active Substance: SULFAMETHOXAZOLE\TRIMETHOPRIM
     Route: 048
  9. IMOVANE [Concomitant]
     Active Substance: ZOPICLONE
     Route: 048
  10. OXYNORMORO [Concomitant]
     Active Substance: OXYCODONE HYDROCHLORIDE
     Route: 048
  11. LASILIX [Concomitant]
     Active Substance: FUROSEMIDE
     Route: 048
  12. ENVARSUS XR [Concomitant]
     Active Substance: TACROLIMUS
     Route: 048
  13. CELLCEPT [Concomitant]
     Active Substance: MYCOPHENOLATE MOFETIL\MYCOPHENOLATE MOFETIL HYDROCHLORIDE
     Route: 048
  14. PANTOPRAZOLE [Concomitant]
     Active Substance: PANTOPRAZOLE
     Route: 048
  15. CEFEPIME [Concomitant]
     Active Substance: CEFEPIME HYDROCHLORIDE
     Route: 048

REACTIONS (2)
  - Leukopenia [Recovered/Resolved]
  - Agranulocytosis [Recovered/Resolved]

NARRATIVE: CASE EVENT DATE: 201907
